FAERS Safety Report 7001817-X (Version None)
Quarter: 2010Q3

REPORT INFORMATION
  Report Type: 
  Country: None (occurrence: None)
  Receive Date: 20100920
  Receipt Date: 20100721
  Transmission Date: 20110219
  Serious: No
  Sender: FDA-Public Use
  Company Number: US-ASTRAZENECA-2010SE34043

PATIENT
  Age: 30 Year
  Sex: Male
  Weight: 108 kg

DRUGS (8)
  1. SEROQUEL [Suspect]
     Indication: BIPOLAR DISORDER
     Route: 048
  2. SEROQUEL [Suspect]
     Indication: SUICIDE ATTEMPT
     Route: 048
  3. SEROQUEL [Suspect]
     Route: 048
     Dates: start: 20090101
  4. SEROQUEL [Suspect]
     Route: 048
     Dates: start: 20090101
  5. SEROQUEL [Suspect]
     Route: 048
     Dates: start: 20090101
  6. SEROQUEL [Suspect]
     Route: 048
     Dates: start: 20090101
  7. PROZAC [Concomitant]
     Route: 048
     Dates: start: 20090201
  8. ZANTAC [Concomitant]
     Route: 048
     Dates: start: 20090201

REACTIONS (6)
  - ANGER [None]
  - DRUG DOSE OMISSION [None]
  - HISTRIONIC PERSONALITY DISORDER [None]
  - INSOMNIA [None]
  - LOGORRHOEA [None]
  - RESTLESSNESS [None]
